FAERS Safety Report 22198349 (Version 2)
Quarter: 2023Q2

REPORT INFORMATION
  Report Type: Spontaneous
  Country: IT (occurrence: IT)
  Receive Date: 20230411
  Receipt Date: 20230417
  Transmission Date: 20230722
  Serious: Yes (Other)
  Sender: FDA-Public Use
  Company Number: IT-MYLANLABS-2023M1037392

PATIENT
  Sex: Female

DRUGS (3)
  1. LYRICA [Suspect]
     Active Substance: PREGABALIN
     Indication: Back pain
     Dosage: 75 MILLIGRAM, QD
     Route: 065
  2. LYRICA [Suspect]
     Active Substance: PREGABALIN
     Indication: Spinal pain
  3. LYRICA [Suspect]
     Active Substance: PREGABALIN
     Indication: Anxiety

REACTIONS (5)
  - Dependence [Unknown]
  - Euphoric mood [Unknown]
  - Insomnia [Unknown]
  - Off label use [Unknown]
  - Therapeutic response unexpected [Unknown]
